FAERS Safety Report 8889739 (Version 1)
Quarter: 2012Q4

REPORT INFORMATION
  Report Type: 
  Country: US (occurrence: US)
  Receive Date: 20121107
  Receipt Date: 20121107
  Transmission Date: 20130627
  Serious: Yes (Other)
  Sender: FDA-Public Use
  Company Number: US-ASTRAZENECA-2012SE70168

PATIENT
  Age: 60 Year
  Sex: Female

DRUGS (1)
  1. CRESTOR [Suspect]
     Route: 048

REACTIONS (6)
  - Liver function test abnormal [Unknown]
  - Alanine aminotransferase increased [Unknown]
  - Influenza like illness [Unknown]
  - Chromaturia [Unknown]
  - Pyrexia [Unknown]
  - Dizziness [Unknown]
